FAERS Safety Report 5737029-7 (Version None)
Quarter: 2008Q2

REPORT INFORMATION
  Report Type: 
  Country: None (occurrence: None)
  Receive Date: 20080512
  Receipt Date: 20080512
  Transmission Date: 20081010
  Serious: Yes (Disabling, Other)
  Sender: FDA-Public Use
  Company Number: None

PATIENT
  Sex: Female
  Weight: 54.4316 kg

DRUGS (6)
  1. LEVAQUIN [Suspect]
     Indication: NASAL DISORDER
     Dosage: 1 (750MG) PER DAY ORAL
     Route: 048
     Dates: start: 20071206
  2. LEVAQUIN [Suspect]
     Indication: PSEUDOMONAS INFECTION
     Dosage: 1 (750MG) PER DAY ORAL
     Route: 048
     Dates: start: 20071206
  3. LEVAQUIN [Suspect]
     Indication: SINUSITIS
     Dosage: 1 (750MG) PER DAY ORAL
     Route: 048
     Dates: start: 20071206
  4. PROPRANOLOL [Concomitant]
  5. NEXIUM [Concomitant]
  6. RELPAX [Concomitant]

REACTIONS (4)
  - ARTHRALGIA [None]
  - ASTHENIA [None]
  - MYALGIA [None]
  - PARAESTHESIA [None]
